FAERS Safety Report 11366787 (Version 1)
Quarter: 2015Q3

REPORT INFORMATION
  Report Type: Spontaneous
  Country: US (occurrence: US)
  Receive Date: 20150811
  Receipt Date: 20150811
  Transmission Date: 20151125
  Serious: No
  Sender: FDA-Public Use
  Company Number: US-ELI_LILLY_AND_COMPANY-US201304006628

PATIENT
  Age: 69 Year
  Sex: Male
  Weight: 114.29 kg

DRUGS (3)
  1. ACCUTANE [Concomitant]
     Active Substance: ISOTRETINOIN
  2. AXIRON [Suspect]
     Active Substance: TESTOSTERONE
     Indication: BLOOD TESTOSTERONE DECREASED
     Dosage: 60 MG, QD
     Route: 061
  3. AXIRON [Suspect]
     Active Substance: TESTOSTERONE
     Dosage: 120 MG, QD
     Route: 061

REACTIONS (4)
  - Underdose [Recovered/Resolved]
  - Memory impairment [Recovered/Resolved]
  - Nipple pain [Recovered/Resolved]
  - Incorrect dose administered [Recovered/Resolved]

NARRATIVE: CASE EVENT DATE: 20130421
